FAERS Safety Report 4326313-X (Version None)
Quarter: 2004Q1

REPORT INFORMATION
  Report Type: 
  Country: None (occurrence: None)
  Receive Date: 20040325
  Receipt Date: 20040316
  Transmission Date: 20041129
  Serious: Yes (Hospitalization)
  Sender: FDA-Public Use
  Company Number: 024

PATIENT
  Age: 45 Year
  Sex: Female

DRUGS (2)
  1. AMOXICILLIN AND CLAVULANATE POTASSIUM [Suspect]
     Indication: PNEUMONIA
     Dosage: 2 G AMOXICILLIN
  2. ASPIRIN [Suspect]
     Indication: CHEST PAIN
     Dosage: T.I.D. 12 DAYS I.V.

REACTIONS (2)
  - ANURIA [None]
  - RENAL FAILURE ACUTE [None]
